FAERS Safety Report 7039054-5 (Version None)
Quarter: 2010Q4

REPORT INFORMATION
  Report Type: 
  Country: None (occurrence: None)
  Receive Date: 20101012
  Receipt Date: 20100930
  Transmission Date: 20110411
  Serious: Yes (Hospitalization)
  Sender: FDA-Public Use
  Company Number: FR-JNJFOC-20101001152

PATIENT
  Sex: Male

DRUGS (7)
  1. RISPERDAL [Suspect]
     Indication: PRODUCT USED FOR UNKNOWN INDICATION
     Dosage: BETWEEN 13-AUG-2010 TO 16-AUG-2010
     Route: 048
  2. RISPERDAL [Suspect]
     Route: 048
  3. DEPAKOTE [Suspect]
     Indication: PRODUCT USED FOR UNKNOWN INDICATION
     Route: 048
  4. DEPAKOTE [Suspect]
     Route: 048
  5. DEPAKOTE [Suspect]
     Dosage: ON 03-SEP-2010, THE PATIENT WAS REPORTED TO BE ADMINISTERED 2 G PER DAY AS FOLLOWS : 500 MG 2-0-2
     Route: 048
  6. TERCIAN [Concomitant]
  7. RIVOTRIL [Concomitant]
     Dosage: 15 DROPS

REACTIONS (3)
  - ATAXIA [None]
  - HYPERAMMONAEMIA [None]
  - HYPOKINESIA [None]
